FAERS Safety Report 4375248-5 (Version None)
Quarter: 2004Q2

REPORT INFORMATION
  Report Type: 
  Country: None (occurrence: None)
  Receive Date: 20040609
  Receipt Date: 20040525
  Transmission Date: 20050107
  Serious: Yes (Life-Threatening)
  Sender: FDA-Public Use
  Company Number: PIR 0405042

PATIENT
  Age: 59 Year
  Sex: Female
  Weight: 146.9654 kg

DRUGS (2)
  1. LACTATED RINGER'S [Suspect]
     Dosage: 150 CC IV
     Route: 042
  2. LACTATED RINGER'S [Suspect]
     Dosage: 130 CC IV
     Route: 042

REACTIONS (4)
  - ABDOMINAL PAIN [None]
  - ESCHERICHIA URINARY TRACT INFECTION [None]
  - SEPSIS [None]
  - VOMITING [None]
